FAERS Safety Report 4410926-0 (Version None)
Quarter: 2004Q3

REPORT INFORMATION
  Report Type: 
  Country: None (occurrence: None)
  Receive Date: 20040728
  Receipt Date: 20040728
  Transmission Date: 20050211
  Serious: Yes (Hospitalization)
  Sender: FDA-Public Use
  Company Number: None

PATIENT
  Age: 62 Year
  Sex: Male
  Weight: 95.7 kg

DRUGS (36)
  1. PIPERACILLIN/TAZOBACTAM [Suspect]
     Indication: SEPSIS
     Dosage: 6.75 G, 2.25G Q8 IV PIGGY
     Route: 042
     Dates: start: 20040228, end: 20040326
  2. GABAPENTIN [Concomitant]
  3. MORPHINE SULFATE [Concomitant]
  4. MULTIVITAMINS/MINERALS [Concomitant]
  5. LISINOPRIL [Concomitant]
  6. FELODIPINE [Concomitant]
  7. ATENOLOL [Concomitant]
  8. ASPIRIN [Concomitant]
  9. BECAPLERMIN [Concomitant]
  10. POVIDON IODINE [Concomitant]
  11. QUININE SULFATE [Concomitant]
  12. INSULIN HUMAN NPH/REGULAR [Concomitant]
  13. CHLORPHYLL/PAPAIN [Concomitant]
  14. CALCIUM ACETATE [Concomitant]
  15. GEMFIBROZIL [Concomitant]
  16. FUROSEMIDE [Concomitant]
  17. MORPHINE SULFATE [Concomitant]
  18. ACETAMINOPHEN [Concomitant]
  19. PROPOXYPHENE N/ ACETAMINOPHEN [Concomitant]
  20. PROCHLORPERAZINE MALEATE [Concomitant]
  21. GABAPENTIN [Concomitant]
  22. LISINOPRIL [Concomitant]
  23. FELODIPINE [Concomitant]
  24. HEPARIN [Concomitant]
  25. INSULIN HUMAN NPH/REG 70/30 [Concomitant]
  26. GENTAMICIN SULFATE [Concomitant]
  27. GEBFIBROZIL [Concomitant]
  28. CALCIUM ACETATE [Concomitant]
  29. PIPERACILLIN/TAZOBACTAM [Concomitant]
  30. PROPOXYPHENE N [Concomitant]
  31. AMOXICILLIN AND CLAVULANATE POTASSIUM [Concomitant]
  32. TEMAZEPAM [Concomitant]
  33. OXYCODONE 5MG/ACETAMINOPHEN [Concomitant]
  34. LISINOPRIL [Concomitant]
  35. ONDANSETRON [Concomitant]
  36. VANCOMYCIN HCL [Concomitant]

REACTIONS (1)
  - VASCULITIS [None]
